FAERS Safety Report 4340062-3 (Version None)
Quarter: 2004Q2

REPORT INFORMATION
  Report Type: 
  Country: None (occurrence: None)
  Receive Date: 20040412
  Receipt Date: 20040331
  Transmission Date: 20050107
  Serious: Yes (Hospitalization, Other)
  Sender: FDA-Public Use
  Company Number: 2004016795

PATIENT
  Age: 86 Year
  Sex: Female

DRUGS (2)
  1. AMLODIPINE [Suspect]
     Indication: ANGINA PECTORIS
     Dosage: 5 MG (DAILY), ORAL
     Route: 048
     Dates: end: 20040215
  2. NIFEDIPINE [Suspect]
     Indication: ANGINA PECTORIS
     Dosage: 40 MG (DAILY), ORAL
     Route: 048
     Dates: start: 20040216, end: 20040228

REACTIONS (8)
  - ACUTE PULMONARY OEDEMA [None]
  - ANGINA PECTORIS [None]
  - BLOOD POTASSIUM INCREASED [None]
  - BLOOD UREA INCREASED [None]
  - CARDIAC FAILURE CONGESTIVE [None]
  - DILATATION ATRIAL [None]
  - DYSPNOEA [None]
  - HYPERURICAEMIA [None]
